FAERS Safety Report 16653525 (Version 4)
Quarter: 2020Q3

REPORT INFORMATION
  Report Type: Spontaneous
  Country: US (occurrence: US)
  Receive Date: 20190731
  Receipt Date: 20200811
  Transmission Date: 20201102
  Serious: Yes (Hospitalization, Other)
  Sender: FDA-Public Use
  Company Number: US-GILEAD-2019-0420288

PATIENT
  Age: 32 Year
  Sex: Male
  Weight: 60.32 kg

DRUGS (41)
  1. GENVOYA [Concomitant]
     Active Substance: COBICISTAT\ELVITEGRAVIR\EMTRICITABINE\TENOFOVIR ALAFENAMIDE FUMARATE
  2. ADDERALL [Concomitant]
     Active Substance: AMPHETAMINE ASPARTATE\AMPHETAMINE SULFATE\DEXTROAMPHETAMINE SACCHARATE\DEXTROAMPHETAMINE SULFATE
  3. PNEUMOVAX 23 [Concomitant]
     Active Substance: PNEUMOCOCCAL VACCINE, POLYVALENT 23
  4. HEPATITIS A [Concomitant]
  5. ONDANSETRON [Concomitant]
     Active Substance: ONDANSETRON
  6. AMBIEN [Concomitant]
     Active Substance: ZOLPIDEM TARTRATE
  7. THIAMINE. [Concomitant]
     Active Substance: THIAMINE
  8. NORCO [Concomitant]
     Active Substance: ACETAMINOPHEN\HYDROCODONE BITARTRATE
  9. ATIVAN [Concomitant]
     Active Substance: LORAZEPAM
  10. EPOETIN ALFA [Concomitant]
     Active Substance: ERYTHROPOIETIN
  11. ISENTRESS [Concomitant]
     Active Substance: RALTEGRAVIR POTASSIUM
  12. TRAZODONE [Concomitant]
     Active Substance: TRAZODONE HYDROCHLORIDE
  13. PROCRIT [Concomitant]
     Active Substance: ERYTHROPOIETIN
  14. MULTIVITAMINUM [Concomitant]
     Active Substance: VITAMINS
  15. CEFTRIAXONE. [Concomitant]
     Active Substance: CEFTRIAXONE
  16. AZITHROMYCIN ANHYDROUS. [Concomitant]
     Active Substance: AZITHROMYCIN ANHYDROUS
  17. MIRTAZAPINE. [Concomitant]
     Active Substance: MIRTAZAPINE
  18. COSYNTROPIN. [Concomitant]
     Active Substance: COSYNTROPIN
  19. TIVICAY [Concomitant]
     Active Substance: DOLUTEGRAVIR SODIUM
  20. EDURANT [Concomitant]
     Active Substance: RILPIVIRINE HYDROCHLORIDE
  21. POTASSIUM CITRATE. [Concomitant]
     Active Substance: POTASSIUM CITRATE
  22. CLONAZEPAM. [Concomitant]
     Active Substance: CLONAZEPAM
  23. DOLUTEGRAVIR;RILPIVIRINE [Concomitant]
     Active Substance: DOLUTEGRAVIR SODIUM\RILPIVIRINE HYDROCHLORIDE
  24. LIBRIUM [Concomitant]
     Active Substance: CHLORDIAZEPOXIDE HYDROCHLORIDE
  25. MENINGOCOCCAL POLYSACCHARIDE VACCINE A NOS [Concomitant]
     Active Substance: MENINGOCOCCAL POLYSACCHARIDE VACCINE A\NEISSERIA MENINGITIDIS GROUP A CAPSULAR POLYSACCHARIDE ANTIGEN
  26. HAVRIX [Concomitant]
     Active Substance: HEPATITIS A VIRUS STRAIN HM175 ANTIGEN (FORMALDEHYDE INACTIVATED)
  27. DIPHENHYDRAMINE HCL [Concomitant]
     Active Substance: DIPHENHYDRAMINE HYDROCHLORIDE
  28. IBUPROFEN. [Concomitant]
     Active Substance: IBUPROFEN
  29. PANTOPRAZOLE [Concomitant]
     Active Substance: PANTOPRAZOLE
  30. HEPATITIS B VACCINE [Concomitant]
     Active Substance: HEPATITIS B VIRUS VACCINE
  31. HALOPERIDOL. [Concomitant]
     Active Substance: HALOPERIDOL
  32. ZOFRAN [Concomitant]
     Active Substance: ONDANSETRON HYDROCHLORIDE
  33. MORPHINE [Concomitant]
     Active Substance: MORPHINE
  34. PREZCOBIX [Concomitant]
     Active Substance: COBICISTAT\DARUNAVIR ETHANOLATE
  35. PEPCID [Concomitant]
     Active Substance: FAMOTIDINE
  36. ACETAMINOPHEN. [Concomitant]
     Active Substance: ACETAMINOPHEN
  37. MAGNESIUM SULFATE. [Concomitant]
     Active Substance: MAGNESIUM SULFATE
  38. TRUVADA [Suspect]
     Active Substance: EMTRICITABINE\TENOFOVIR DISOPROXIL FUMARATE
     Indication: HIV INFECTION
     Dosage: UNK
     Route: 048
     Dates: start: 201008, end: 201802
  39. INFLUENZA [Concomitant]
     Active Substance: INFLUENZA VIRUS VACCINE
  40. RISPERIDONE. [Concomitant]
     Active Substance: RISPERIDONE
  41. FOLIC ACID. [Concomitant]
     Active Substance: FOLIC ACID

REACTIONS (8)
  - Emotional distress [Unknown]
  - Anxiety [Unknown]
  - Partner stress [Unknown]
  - Anhedonia [Unknown]
  - Chronic kidney disease [Not Recovered/Not Resolved]
  - Pain [Unknown]
  - Economic problem [Unknown]
  - Renal failure [Unknown]

NARRATIVE: CASE EVENT DATE: 201406
